FAERS Safety Report 14000037 (Version 3)
Quarter: 2017Q4

REPORT INFORMATION
  Report Type: Spontaneous
  Country: CZ (occurrence: CZ)
  Receive Date: 20170922
  Receipt Date: 20171025
  Transmission Date: 20180321
  Serious: Yes (Other)
  Sender: FDA-Public Use
  Company Number: CZ-TEVA-807584ROM

PATIENT
  Age: 71 Year

DRUGS (2)
  1. AZACITIDINE. [Suspect]
     Active Substance: AZACITIDINE
     Indication: MYELODYSPLASTIC SYNDROME
     Dosage: APPLICATION FROM DAY 1 TO DAY 7, THEN FROM DAY 8 DO TO DAY 28 WITHOUT THERAPY
     Route: 058
     Dates: start: 2014, end: 2015
  2. FILGRASTIM [Suspect]
     Active Substance: FILGRASTIM
     Indication: MYELODYSPLASTIC SYNDROME
     Dosage: 6 MU DAILY; APPLICATION FROM DAY 1 TO DAY 7, THEN FROM DAY 8 DO TO DAY 28 WITHOUT THERAPY
     Route: 058
     Dates: start: 201412, end: 2015

REACTIONS (8)
  - Acute febrile neutrophilic dermatosis [Recovered/Resolved]
  - Depression [Recovered/Resolved]
  - Fatigue [Recovered/Resolved]
  - Pyrexia [Recovered/Resolved]
  - Pancytopenia [Recovered/Resolved]
  - Pyoderma gangrenosum [Recovered/Resolved]
  - Lymphocytic infiltration [Recovered/Resolved]
  - Decreased appetite [Recovered/Resolved]

NARRATIVE: CASE EVENT DATE: 2015
